FAERS Safety Report 9844544 (Version 5)
Quarter: 2014Q2

REPORT INFORMATION
  Report Type: Spontaneous
  Country: US (occurrence: US)
  Receive Date: 20140127
  Receipt Date: 20140606
  Transmission Date: 20141212
  Serious: Yes (Hospitalization, Other)
  Sender: FDA-Public Use
  Company Number: US-JNJFOC-20140107169

PATIENT
  Age: 41 Year
  Sex: Female
  Weight: 78.93 kg

DRUGS (16)
  1. TYLENOL EXTRA STRENGTH [Suspect]
     Indication: HEADACHE
     Route: 065
     Dates: start: 20070608, end: 20070629
  2. TYLENOL EXTRA STRENGTH [Suspect]
     Indication: ABDOMINAL PAIN
     Route: 065
     Dates: start: 20070608, end: 20070629
  3. TYLENOL REGULAR STRENGTH [Suspect]
     Indication: HEADACHE
     Dosage: 2-3 TABLETS, EVERY SEVERAL HOURS
     Route: 065
     Dates: start: 20070608, end: 20070629
  4. TYLENOL REGULAR STRENGTH [Suspect]
     Indication: ABDOMINAL PAIN
     Dosage: 2-3 TABLETS, EVERY SEVERAL HOURS
     Route: 065
     Dates: start: 20070608, end: 20070629
  5. TYLENOL PM EXTRA STRENGTH [Suspect]
     Indication: SLEEP DISORDER THERAPY
     Route: 065
     Dates: start: 200706, end: 20070629
  6. TYLENOL PM EXTRA STRENGTH [Suspect]
     Indication: HEADACHE
     Route: 065
     Dates: start: 200706, end: 20070629
  7. N-ACETYLCYSTEINE [Concomitant]
     Indication: PRODUCT USED FOR UNKNOWN INDICATION
     Route: 065
  8. AMITIZA [Concomitant]
     Indication: PRODUCT USED FOR UNKNOWN INDICATION
     Route: 065
  9. PERCOCET [Concomitant]
     Indication: PRODUCT USED FOR UNKNOWN INDICATION
     Route: 065
  10. HYDROCORTISONE [Concomitant]
     Indication: PRURITUS
     Route: 061
  11. DILAUDID [Concomitant]
     Indication: PRODUCT USED FOR UNKNOWN INDICATION
     Route: 042
  12. ZOFRAN [Concomitant]
     Indication: PRODUCT USED FOR UNKNOWN INDICATION
     Route: 042
  13. LEVOFLOXACIN [Concomitant]
     Indication: PRODUCT USED FOR UNKNOWN INDICATION
     Route: 042
  14. PROTONIX [Concomitant]
     Indication: PRODUCT USED FOR UNKNOWN INDICATION
     Route: 042
  15. SENOKOT [Concomitant]
     Indication: CONSTIPATION
     Route: 048
  16. ACETADOTE [Concomitant]
     Indication: PRODUCT USED FOR UNKNOWN INDICATION
     Route: 042

REACTIONS (4)
  - Acute hepatic failure [Recovering/Resolving]
  - Renal failure acute [Recovering/Resolving]
  - Toxicity to various agents [Recovering/Resolving]
  - Hyperglycaemia [Unknown]
